FAERS Safety Report 20779513 (Version 1)
Quarter: 2022Q2

REPORT INFORMATION
  Report Type: Report from Study
  Country: CN (occurrence: None)
  Receive Date: 20220503
  Receipt Date: 20220503
  Transmission Date: 20220721
  Serious: Yes (Hospitalization)
  Sender: FDA-Public Use
  Company Number: 2022A072077

PATIENT
  Age: 906 Month
  Sex: Male

DRUGS (78)
  1. DURVALUMAB [Suspect]
     Active Substance: DURVALUMAB
     Indication: Non-small cell lung cancer
     Route: 042
     Dates: start: 20171215, end: 20171215
  2. DURVALUMAB [Suspect]
     Active Substance: DURVALUMAB
     Indication: Non-small cell lung cancer
     Route: 042
     Dates: start: 20180111, end: 20180111
  3. DURVALUMAB [Suspect]
     Active Substance: DURVALUMAB
     Indication: Non-small cell lung cancer
     Route: 042
     Dates: start: 20180207, end: 20180207
  4. DURVALUMAB [Suspect]
     Active Substance: DURVALUMAB
     Indication: Non-small cell lung cancer
     Route: 042
     Dates: start: 20180307, end: 20180307
  5. DURVALUMAB [Suspect]
     Active Substance: DURVALUMAB
     Indication: Non-small cell lung cancer
     Route: 042
     Dates: start: 20180408, end: 20180408
  6. DURVALUMAB [Suspect]
     Active Substance: DURVALUMAB
     Indication: Non-small cell lung cancer
     Route: 042
     Dates: start: 20180508, end: 20180508
  7. DURVALUMAB [Suspect]
     Active Substance: DURVALUMAB
     Indication: Non-small cell lung cancer
     Route: 042
     Dates: start: 20180531, end: 20180531
  8. DURVALUMAB [Suspect]
     Active Substance: DURVALUMAB
     Indication: Non-small cell lung cancer
     Route: 042
     Dates: start: 20180626, end: 20180626
  9. DURVALUMAB [Suspect]
     Active Substance: DURVALUMAB
     Indication: Non-small cell lung cancer
     Route: 042
     Dates: start: 20180725, end: 20180725
  10. DURVALUMAB [Suspect]
     Active Substance: DURVALUMAB
     Indication: Non-small cell lung cancer
     Route: 042
     Dates: start: 20180823, end: 20180823
  11. DURVALUMAB [Suspect]
     Active Substance: DURVALUMAB
     Indication: Non-small cell lung cancer
     Route: 042
     Dates: start: 20180921, end: 20180921
  12. DURVALUMAB [Suspect]
     Active Substance: DURVALUMAB
     Indication: Non-small cell lung cancer
     Route: 042
     Dates: start: 20181018, end: 20181018
  13. DURVALUMAB [Suspect]
     Active Substance: DURVALUMAB
     Indication: Non-small cell lung cancer
     Route: 042
     Dates: start: 20181116, end: 20181116
  14. DURVALUMAB [Suspect]
     Active Substance: DURVALUMAB
     Indication: Non-small cell lung cancer
     Route: 042
     Dates: start: 20181213, end: 20181213
  15. DURVALUMAB [Suspect]
     Active Substance: DURVALUMAB
     Indication: Non-small cell lung cancer
     Route: 042
     Dates: start: 20190111, end: 20190111
  16. DURVALUMAB [Suspect]
     Active Substance: DURVALUMAB
     Indication: Non-small cell lung cancer
     Route: 042
     Dates: start: 20190211, end: 20190211
  17. DURVALUMAB [Suspect]
     Active Substance: DURVALUMAB
     Indication: Non-small cell lung cancer
     Route: 042
     Dates: start: 20190307, end: 20190307
  18. DURVALUMAB [Suspect]
     Active Substance: DURVALUMAB
     Indication: Non-small cell lung cancer
     Route: 042
     Dates: start: 20190403, end: 20190403
  19. DURVALUMAB [Suspect]
     Active Substance: DURVALUMAB
     Indication: Non-small cell lung cancer
     Route: 042
     Dates: start: 20190505, end: 20190505
  20. DURVALUMAB [Suspect]
     Active Substance: DURVALUMAB
     Indication: Non-small cell lung cancer
     Route: 042
     Dates: start: 20190530, end: 20190530
  21. DURVALUMAB [Suspect]
     Active Substance: DURVALUMAB
     Indication: Non-small cell lung cancer
     Route: 042
     Dates: start: 20190627, end: 20190627
  22. DURVALUMAB [Suspect]
     Active Substance: DURVALUMAB
     Indication: Non-small cell lung cancer
     Route: 042
     Dates: start: 20190725, end: 20190725
  23. DURVALUMAB [Suspect]
     Active Substance: DURVALUMAB
     Indication: Non-small cell lung cancer
     Route: 042
     Dates: start: 20190822, end: 20190822
  24. DURVALUMAB [Suspect]
     Active Substance: DURVALUMAB
     Indication: Non-small cell lung cancer
     Route: 042
     Dates: start: 20190919, end: 20190919
  25. DURVALUMAB [Suspect]
     Active Substance: DURVALUMAB
     Indication: Non-small cell lung cancer
     Route: 042
     Dates: start: 20191017, end: 20191017
  26. DURVALUMAB [Suspect]
     Active Substance: DURVALUMAB
     Indication: Non-small cell lung cancer
     Route: 042
     Dates: start: 20191113, end: 20191113
  27. DURVALUMAB [Suspect]
     Active Substance: DURVALUMAB
     Indication: Non-small cell lung cancer
     Route: 042
     Dates: start: 20191212, end: 20191212
  28. DURVALUMAB [Suspect]
     Active Substance: DURVALUMAB
     Indication: Non-small cell lung cancer
     Route: 042
     Dates: start: 20200109, end: 20200109
  29. DURVALUMAB [Suspect]
     Active Substance: DURVALUMAB
     Indication: Non-small cell lung cancer
     Route: 042
     Dates: start: 20200305, end: 20200305
  30. DURVALUMAB [Suspect]
     Active Substance: DURVALUMAB
     Indication: Non-small cell lung cancer
     Route: 042
     Dates: start: 20200401, end: 20200401
  31. DURVALUMAB [Suspect]
     Active Substance: DURVALUMAB
     Indication: Non-small cell lung cancer
     Route: 042
     Dates: start: 20200428, end: 20200428
  32. DURVALUMAB [Suspect]
     Active Substance: DURVALUMAB
     Indication: Non-small cell lung cancer
     Route: 042
     Dates: start: 20200527, end: 20200527
  33. DURVALUMAB [Suspect]
     Active Substance: DURVALUMAB
     Indication: Non-small cell lung cancer
     Route: 042
     Dates: start: 20200624, end: 20200624
  34. DURVALUMAB [Suspect]
     Active Substance: DURVALUMAB
     Indication: Non-small cell lung cancer
     Route: 042
     Dates: start: 20200722, end: 20200722
  35. DURVALUMAB [Suspect]
     Active Substance: DURVALUMAB
     Indication: Non-small cell lung cancer
     Route: 042
     Dates: start: 20200819, end: 20200819
  36. DURVALUMAB [Suspect]
     Active Substance: DURVALUMAB
     Indication: Non-small cell lung cancer
     Route: 042
     Dates: start: 20200916, end: 20200916
  37. DURVALUMAB [Suspect]
     Active Substance: DURVALUMAB
     Indication: Non-small cell lung cancer
     Route: 042
     Dates: start: 20201014, end: 20201014
  38. DURVALUMAB [Suspect]
     Active Substance: DURVALUMAB
     Indication: Non-small cell lung cancer
     Route: 042
     Dates: start: 20201111, end: 20201111
  39. DURVALUMAB [Suspect]
     Active Substance: DURVALUMAB
     Indication: Non-small cell lung cancer
     Route: 042
     Dates: start: 20201211, end: 20201211
  40. DURVALUMAB [Suspect]
     Active Substance: DURVALUMAB
     Indication: Non-small cell lung cancer
     Route: 042
     Dates: start: 20210106, end: 20210106
  41. DURVALUMAB [Suspect]
     Active Substance: DURVALUMAB
     Indication: Non-small cell lung cancer
     Route: 042
     Dates: start: 20210203, end: 20210203
  42. DURVALUMAB [Suspect]
     Active Substance: DURVALUMAB
     Indication: Non-small cell lung cancer
     Route: 042
     Dates: start: 20210303, end: 20210303
  43. DURVALUMAB [Suspect]
     Active Substance: DURVALUMAB
     Indication: Non-small cell lung cancer
     Route: 042
     Dates: start: 20210402, end: 20210402
  44. DURVALUMAB [Suspect]
     Active Substance: DURVALUMAB
     Indication: Non-small cell lung cancer
     Route: 042
     Dates: start: 20210429, end: 20210429
  45. DURVALUMAB [Suspect]
     Active Substance: DURVALUMAB
     Indication: Non-small cell lung cancer
     Route: 042
     Dates: start: 20210527, end: 20210527
  46. DURVALUMAB [Suspect]
     Active Substance: DURVALUMAB
     Indication: Non-small cell lung cancer
     Route: 042
     Dates: start: 20210624, end: 20210624
  47. DURVALUMAB [Suspect]
     Active Substance: DURVALUMAB
     Indication: Non-small cell lung cancer
     Route: 042
     Dates: start: 20210721, end: 20210721
  48. DURVALUMAB [Suspect]
     Active Substance: DURVALUMAB
     Indication: Non-small cell lung cancer
     Route: 042
     Dates: start: 20210819, end: 20210819
  49. DURVALUMAB [Suspect]
     Active Substance: DURVALUMAB
     Indication: Non-small cell lung cancer
     Route: 042
     Dates: start: 20210916, end: 20210916
  50. DURVALUMAB [Suspect]
     Active Substance: DURVALUMAB
     Indication: Non-small cell lung cancer
     Route: 042
     Dates: start: 20211013, end: 20211013
  51. DURVALUMAB [Suspect]
     Active Substance: DURVALUMAB
     Indication: Non-small cell lung cancer
     Route: 042
     Dates: start: 20211111, end: 20211111
  52. DURVALUMAB [Suspect]
     Active Substance: DURVALUMAB
     Indication: Non-small cell lung cancer
     Route: 042
     Dates: start: 20211208, end: 20211208
  53. DURVALUMAB [Suspect]
     Active Substance: DURVALUMAB
     Indication: Non-small cell lung cancer
     Route: 042
     Dates: start: 20220107, end: 20220107
  54. DURVALUMAB [Suspect]
     Active Substance: DURVALUMAB
     Indication: Non-small cell lung cancer
     Route: 042
     Dates: start: 20220217, end: 20220217
  55. DURVALUMAB [Suspect]
     Active Substance: DURVALUMAB
     Indication: Non-small cell lung cancer
     Route: 042
     Dates: start: 20220330, end: 20220330
  56. DOXOFYLLINE FOR INJECTION [Concomitant]
     Indication: Antithrombin III
     Dates: start: 20171201, end: 20171201
  57. BROMHEXINE HYDROCHLORIDE FOR INJECTION [Concomitant]
     Indication: Productive cough
     Dates: start: 20171201, end: 20171202
  58. MULTIVITAMIN WITH MULTIMINERAL TABLETS [Concomitant]
     Indication: Premedication
     Dates: start: 20171201, end: 20171214
  59. SODIUM BICARBONATE [Concomitant]
     Active Substance: SODIUM BICARBONATE
     Indication: Product residue present
     Dates: start: 20180307, end: 20180314
  60. SODIUM BICARBONATE [Concomitant]
     Active Substance: SODIUM BICARBONATE
     Indication: Hyperuricaemia
     Dates: start: 20180307, end: 20180314
  61. SODIUM BICARBONATE [Concomitant]
     Active Substance: SODIUM BICARBONATE
     Indication: Product residue present
     Dates: start: 20190505, end: 20190518
  62. SODIUM BICARBONATE [Concomitant]
     Active Substance: SODIUM BICARBONATE
     Indication: Hyperuricaemia
     Dates: start: 20190505, end: 20190518
  63. SODIUM BICARBONATE [Concomitant]
     Active Substance: SODIUM BICARBONATE
     Indication: Product residue present
     Dates: start: 20190822, end: 20190910
  64. SODIUM BICARBONATE [Concomitant]
     Active Substance: SODIUM BICARBONATE
     Indication: Hyperuricaemia
     Dates: start: 20190822, end: 20190910
  65. RECOMBINANT HUMANTHROMBOPOIETIN INJECTION [Concomitant]
     Indication: Plateletcrit
     Dosage: 1.5 WU EVERY DAY
     Dates: start: 20180503, end: 20180505
  66. RECOMBINANT HUMANTHROMBOPOIETIN INJECTION [Concomitant]
     Indication: Platelet count increased
     Dosage: 1.5 WU EVERY DAY
     Dates: start: 20180503, end: 20180505
  67. RECOMBINANT HUMANTHROMBOPOIETIN INJECTION [Concomitant]
     Indication: Plateletcrit
     Dosage: 1.5 WU EVERY DAY
     Dates: start: 20210401, end: 20210403
  68. RECOMBINANT HUMANTHROMBOPOIETIN INJECTION [Concomitant]
     Indication: Platelet count increased
     Dosage: 1.5 WU EVERY DAY
     Dates: start: 20210401, end: 20210403
  69. GLUTAMINE AND GUAIAZULENE SULFONATE SODIUM GRANNULES [Concomitant]
     Indication: Gastric disorder
     Dates: start: 20190505, end: 20190512
  70. GLUTAMINE AND GUAIAZULENE SULFONATE SODIUM GRANNULES [Concomitant]
     Indication: Gastric disorder
     Dates: start: 20190531, end: 20190603
  71. ACETYLCYSTEINE EFFERVESCENT TABLETS [Concomitant]
     Indication: Productive cough
     Dates: start: 20190530, end: 20190601
  72. SHENG XUE BAO GRANULES (POLYGONUM MULTIFLORUM, LIGUSTRUM LUCIDUM AI... [Concomitant]
     Indication: Platelet count
     Dates: start: 20190822, end: 20190831
  73. SHENG XUE BAO GRANULES (POLYGONUM MULTIFLORUM, LIGUSTRUM LUCIDUM AI... [Concomitant]
     Indication: Platelet count
     Dates: start: 20190919, end: 20190928
  74. SHENG XUE BAO GRANULES (POLYGONUM MULTIFLORUM, LIGUSTRUM LUCIDUM AI... [Concomitant]
     Indication: Platelet count
     Dates: start: 20191114, end: 20191123
  75. COMPOUND PARACETAMOL AND AMANATADINE HYDROCHLORIDE CAPSULES [Concomitant]
     Indication: Upper respiratory tract infection
     Dates: start: 20200811, end: 20200814
  76. FENING PIAN [Concomitant]
     Indication: Upper respiratory tract infection
     Dates: start: 20200811, end: 20200817
  77. COMPOUND GLYCYRRHIZA ORAL SOLUTION [Concomitant]
     Indication: Upper respiratory tract infection
     Dates: start: 20200819, end: 20200824
  78. COMPOUND PLATYCODON GRANDIFLORUM COUGH TABLET (PLATYCODON GRANDIFLO... [Concomitant]
     Indication: Cough
     Dates: start: 20200811, end: 20200817

REACTIONS (1)
  - Encephalitis [Recovered/Resolved]

NARRATIVE: CASE EVENT DATE: 20220201
